FAERS Safety Report 8748686 (Version 3)
Quarter: 2012Q4

REPORT INFORMATION
  Report Type: Report from Study
  Country: US (occurrence: US)
  Receive Date: 20120827
  Receipt Date: 20121102
  Transmission Date: 20130627
  Serious: Yes (Other)
  Sender: FDA-Public Use
  Company Number: US-ROCHE-1107823

PATIENT
  Age: 60 Year
  Sex: Female
  Weight: 83.54 kg

DRUGS (6)
  1. OMALIZUMAB [Suspect]
     Indication: ASTHMA
     Dosage: 2 injections
     Route: 058
     Dates: start: 201112
  2. SYMBICORT [Concomitant]
  3. FLOVENT [Concomitant]
  4. SPIRIVA [Concomitant]
  5. PROAIR (UNITED STATES) [Concomitant]
  6. SINGULAIR [Concomitant]

REACTIONS (2)
  - Asthma [Recovered/Resolved]
  - Asthma [Recovered/Resolved]
